FAERS Safety Report 9966654 (Version 2)
Quarter: 2014Q1

REPORT INFORMATION
  Report Type: Report from Study
  Country: US (occurrence: US)
  Receive Date: 20140305
  Receipt Date: 20140305
  Transmission Date: 20141002
  Serious: Yes (Other)
  Sender: FDA-Public Use
  Company Number: US-ABBVIE-13P-163-1074039-00

PATIENT
  Age: 55 Year
  Sex: Female

DRUGS (11)
  1. HUMIRA [Suspect]
     Indication: CROHN^S DISEASE
     Dates: start: 201209
  2. CYMBALTA [Concomitant]
     Indication: DEPRESSION
  3. FLEXERIL [Concomitant]
     Indication: MUSCLE SPASMS
  4. FLEXERIL [Concomitant]
     Indication: FIBROMYALGIA
  5. L-THYROXINE [Concomitant]
     Indication: HORMONE REPLACEMENT THERAPY
  6. CLONAZEPAM [Concomitant]
     Indication: ANXIETY
  7. METHADONE [Concomitant]
     Indication: PAIN
     Dosage: 2, 3 DAILY
  8. METHADONE [Concomitant]
     Indication: ARTHRALGIA
  9. METHADONE [Concomitant]
     Indication: FIBROMYALGIA
  10. TRAZADONE HCL [Concomitant]
     Indication: INSOMNIA
     Dosage: AT BEDTIME
  11. HYOSCYAMINE [Concomitant]
     Indication: CROHN^S DISEASE

REACTIONS (1)
  - Pain in extremity [Recovering/Resolving]
